FAERS Safety Report 24843096 (Version 3)
Quarter: 2025Q1

REPORT INFORMATION
  Report Type: Spontaneous
  Country: CA (occurrence: CA)
  Receive Date: 20250115
  Receipt Date: 20250317
  Transmission Date: 20250409
  Serious: Yes (Hospitalization, Other)
  Sender: CSL BEHRING
  Company Number: CA-BEH-2025191096

PATIENT
  Age: 72 Year
  Sex: Female
  Weight: 107.5 kg

DRUGS (3)
  1. HUMAN IMMUNOGLOBULIN G [Suspect]
     Active Substance: HUMAN IMMUNOGLOBULIN G
     Indication: Chronic inflammatory demyelinating polyradiculoneuropathy
     Dosage: 28 G, QW(1 EVERY 1 WEEKS)
     Route: 065
     Dates: start: 20190227
  2. HUMAN IMMUNOGLOBULIN G [Suspect]
     Active Substance: HUMAN IMMUNOGLOBULIN G
     Dosage: 26 G, QW(1 EVERY 1 WEEKS)
     Route: 058
     Dates: start: 20190227
  3. ESOMEPRAZOLE SODIUM [Concomitant]
     Active Substance: ESOMEPRAZOLE SODIUM
     Indication: Product used for unknown indication

REACTIONS (2)
  - Pulmonary embolism [Recovering/Resolving]
  - Drug ineffective for unapproved indication [Unknown]
